FAERS Safety Report 19413372 (Version 2)
Quarter: 2022Q3

REPORT INFORMATION
  Report Type: Spontaneous
  Country: CA (occurrence: CA)
  Receive Date: 20210615
  Receipt Date: 20220721
  Transmission Date: 20221027
  Serious: Yes (Hospitalization, Other)
  Sender: FDA-Public Use
  Company Number: CA-BAUSCH-BL-2021-020604

PATIENT
  Age: 44 Year
  Sex: Male

DRUGS (14)
  1. DEXAMETHASONE [Suspect]
     Active Substance: DEXAMETHASONE
     Indication: Prophylaxis
     Route: 042
  2. AMITRIPTYLINE [Suspect]
     Active Substance: AMITRIPTYLINE
     Indication: Pain
     Route: 065
  3. CANNABIDIOL [Suspect]
     Active Substance: CANNABIDIOL
     Indication: Pain
     Route: 065
  4. KETAMINE [Suspect]
     Active Substance: KETAMINE
     Indication: Pain
     Route: 042
  5. KETAMINE [Suspect]
     Active Substance: KETAMINE
     Route: 042
  6. LIDOCAINE [Suspect]
     Active Substance: LIDOCAINE
     Indication: Analgesic therapy
     Dosage: DOSAGE FORM: OINTMENT TOPICAL
     Route: 061
  7. MAGNESIUM SULFATE [Suspect]
     Active Substance: MAGNESIUM SULFATE
     Indication: Analgesic therapy
     Route: 065
  8. MIDAZOLAM HYDROCHLORIDE [Suspect]
     Active Substance: MIDAZOLAM HYDROCHLORIDE
     Indication: Prophylaxis
     Route: 042
  9. MIDAZOLAM HYDROCHLORIDE [Suspect]
     Active Substance: MIDAZOLAM HYDROCHLORIDE
     Route: 042
  10. ONDANSETRON [Suspect]
     Active Substance: ONDANSETRON
     Indication: Prophylaxis
     Route: 042
  11. ONDANSETRON [Suspect]
     Active Substance: ONDANSETRON
     Route: 042
  12. TEMAZEPAM [Suspect]
     Active Substance: TEMAZEPAM
     Indication: Pain
     Route: 065
  13. DULOXETINE HYDROCHLORIDE [Suspect]
     Active Substance: DULOXETINE HYDROCHLORIDE
     Indication: Pain
     Route: 065
  14. ZOPICLONE [Suspect]
     Active Substance: ZOPICLONE
     Indication: Pain
     Route: 065

REACTIONS (1)
  - Behaviour disorder [Recovered/Resolved]
